FAERS Safety Report 24811258 (Version 1)
Quarter: 2025Q1

REPORT INFORMATION
  Report Type: Spontaneous
  Country: US (occurrence: US)
  Receive Date: 20250106
  Receipt Date: 20250106
  Transmission Date: 20250409
  Serious: No
  Sender: INSUD PHARMA
  Company Number: US-INSUD PHARMA-2412US10018

PATIENT

DRUGS (2)
  1. ESTRADIOL [Suspect]
     Active Substance: ESTRADIOL
     Indication: Hormone replacement therapy
     Dosage: 1.25 MILLIGRAM, QD
     Route: 061
     Dates: start: 20241116, end: 20241125
  2. ESTRADIOL [Suspect]
     Active Substance: ESTRADIOL
     Indication: Hormone replacement therapy
     Dosage: 1 PACKET AND PART OF A SECOND PACKET (TO APPROXIMATE HER 1.25 MG DOSE) QD
     Route: 061
     Dates: start: 20241125

REACTIONS (4)
  - Drug ineffective for unapproved indication [Unknown]
  - Intermenstrual bleeding [Recovered/Resolved]
  - Wrong technique in product usage process [Unknown]
  - Product use in unapproved indication [Unknown]

NARRATIVE: CASE EVENT DATE: 20241101
